FAERS Safety Report 18515956 (Version 1)
Quarter: 2020Q4

REPORT INFORMATION
  Report Type: Spontaneous
  Country: US (occurrence: US)
  Receive Date: 20201117
  Receipt Date: 20201117
  Transmission Date: 20210114
  Serious: Yes (Disabling, Other)
  Sender: FDA-Public Use
  Company Number: None

PATIENT
  Age: 72 Year
  Sex: Female
  Weight: 56.7 kg

DRUGS (14)
  1. THYROID SUPPORT [Concomitant]
     Active Substance: HOMEOPATHICS
  2. MAGNESIUM GLYCUNATE [Concomitant]
  3. XANAX [Suspect]
     Active Substance: ALPRAZOLAM
     Indication: SLEEP DISORDER
     Dosage: ?          QUANTITY:1-2 PILLS BEDTIME;?
     Route: 048
     Dates: start: 20200904, end: 20201009
  4. CBD OIL [Concomitant]
     Active Substance: CANNABIDIOL\HERBALS
  5. FLONASE [Concomitant]
     Active Substance: FLUTICASONE PROPIONATE
  6. VIT A [Concomitant]
  7. VIT D / K2 [Concomitant]
  8. POTASSIUM [Concomitant]
     Active Substance: POTASSIUM
  9. SUMATRIPTAN + NAPROXEN PRN [Concomitant]
  10. CALCIUM [Concomitant]
     Active Substance: CALCIUM
  11. VITAMIN D [Concomitant]
     Active Substance: VITAMIN D NOS
  12. ZINC. [Concomitant]
     Active Substance: ZINC
  13. PROBIOTIC [Concomitant]
     Active Substance: PROBIOTICS NOS
  14. VITAMIN C [Concomitant]
     Active Substance: ASCORBIC ACID

REACTIONS (2)
  - Tongue ulceration [None]
  - Mouth ulceration [None]

NARRATIVE: CASE EVENT DATE: 20201009
